FAERS Safety Report 17346689 (Version 4)
Quarter: 2020Q1

REPORT INFORMATION
  Report Type: Report from Study
  Country: US (occurrence: US)
  Receive Date: 20200130
  Receipt Date: 20200305
  Transmission Date: 20200409
  Serious: Yes (Other)
  Sender: FDA-Public Use
  Company Number: NVSC2020US022180

PATIENT
  Sex: Female

DRUGS (3)
  1. COSENTYX [Suspect]
     Active Substance: SECUKINUMAB
     Indication: PSORIASIS
     Dosage: 150 MG, QMO
     Route: 058
  2. COSENTYX [Suspect]
     Active Substance: SECUKINUMAB
     Indication: RHEUMATOID ARTHRITIS
  3. LYRICA [Concomitant]
     Active Substance: PREGABALIN
     Indication: PRODUCT USED FOR UNKNOWN INDICATION
     Dosage: UNK
     Route: 065

REACTIONS (12)
  - Nasopharyngitis [Unknown]
  - Product use in unapproved indication [Unknown]
  - Product dose omission [Unknown]
  - Device difficult to use [Unknown]
  - Upper limb fracture [Unknown]
  - Incorrect dose administered [Unknown]
  - Device malfunction [Unknown]
  - Systemic lupus erythematosus [Unknown]
  - Malaise [Unknown]
  - Psoriasis [Unknown]
  - Rash [Unknown]
  - Cough [Unknown]
